FAERS Safety Report 26096589 (Version 2)
Quarter: 2025Q4

REPORT INFORMATION
  Report Type: Report from Study
  Country: US (occurrence: US)
  Receive Date: 20251127
  Receipt Date: 20251204
  Transmission Date: 20260118
  Serious: Yes (Other)
  Sender: STALLERGENES
  Company Number: US-STALCOR-2025-AER-03266

PATIENT
  Age: 14 Year
  Sex: Male

DRUGS (4)
  1. PALFORZIA [Suspect]
     Active Substance: PEANUT
     Indication: Food allergy
     Dosage: REACTIVE DOSE AT LEVEL 3, 12 MG
     Route: 048
     Dates: start: 20251105
  2. PALFORZIA [Suspect]
     Active Substance: PEANUT
     Dosage: DOSE REDUCED TO 3MG IN RESPONSE TO THE REPORTED ADVERSE EVENTS
     Route: 048
     Dates: start: 20251106
  3. PALFORZIA [Suspect]
     Active Substance: PEANUT
     Dosage: THE PATIENT-INITIATED IMMUNOTHERAPY WITH PALFORZIA IDE ON 08-OCT-2025. LOT/BATCH NUMBER, EXPIRATION
     Route: 048
     Dates: start: 20251008
  4. SYMBICORT [Concomitant]
     Active Substance: BUDESONIDE\FORMOTEROL FUMARATE DIHYDRATE
     Indication: Asthma

REACTIONS (3)
  - Abdominal pain [Recovered/Resolved]
  - Nausea [Recovered/Resolved]
  - Vomiting [Recovered/Resolved]

NARRATIVE: CASE EVENT DATE: 20251105
